FAERS Safety Report 6715408-9 (Version None)
Quarter: 2010Q2

REPORT INFORMATION
  Report Type: 
  Country: None (occurrence: None)
  Receive Date: 20100507
  Receipt Date: 20100507
  Transmission Date: 20101027
  Serious: Yes (Other)
  Sender: FDA-Public Use
  Company Number: None

PATIENT
  Age: 6 Year
  Sex: Female
  Weight: 24.4942 kg

DRUGS (2)
  1. TYLENOL-500 [Suspect]
     Indication: PYREXIA
     Dosage: 10ML Q4 HRS PRN PO
     Route: 048
     Dates: start: 20100306, end: 20100310
  2. MOTRIN [Suspect]
     Dosage: 10ML  Q6 HRS PRN P
     Route: 048

REACTIONS (2)
  - ALANINE AMINOTRANSFERASE INCREASED [None]
  - ASPARTATE AMINOTRANSFERASE INCREASED [None]
